FAERS Safety Report 8167065-5 (Version None)
Quarter: 2012Q1

REPORT INFORMATION
  Report Type: 
  Country: None (occurrence: None)
  Receive Date: 20120227
  Receipt Date: 20120217
  Transmission Date: 20120608
  Serious: Yes (Hospitalization, Other)
  Sender: FDA-Public Use
  Company Number: US-JNJFOC-20120210615

PATIENT
  Sex: Female
  Weight: 46.72 kg

DRUGS (1)
  1. RISPERDAL [Suspect]
     Indication: AGGRESSION
     Route: 048

REACTIONS (15)
  - SUICIDAL IDEATION [None]
  - AGGRESSION [None]
  - DELUSION [None]
  - MATERNAL EXPOSURE DURING PREGNANCY [None]
  - EMOTIONAL DISORDER [None]
  - ASTHMA [None]
  - ADVERSE EVENT [None]
  - SELF INJURIOUS BEHAVIOUR [None]
  - SURGERY [None]
  - DYSPNOEA [None]
  - SNORING [None]
  - AMNESIA [None]
  - HALLUCINATION [None]
  - AFFECTIVE DISORDER [None]
  - HYPERSOMNIA [None]
